FAERS Safety Report 5517413-7 (Version None)
Quarter: 2007Q4

REPORT INFORMATION
  Report Type: 
  Country: None (occurrence: None)
  Receive Date: 20071114
  Receipt Date: 20071030
  Transmission Date: 20080405
  Serious: Yes (Other)
  Sender: FDA-Public Use
  Company Number: GB-GENENTECH-249885

PATIENT
  Age: 60 Year
  Sex: Female

DRUGS (9)
  1. HERCEPTIN [Suspect]
     Indication: BREAST CANCER
     Dosage: 8 MG/KG, UNK
     Route: 042
     Dates: start: 20070531
  2. HERCEPTIN [Suspect]
     Dosage: 6 MG/KG, Q3W
     Route: 042
     Dates: end: 20070816
  3. WARFARIN SODIUM [Concomitant]
     Indication: DRUG USE FOR UNKNOWN INDICATION
     Dates: start: 19900615
  4. QUINAPRIL HCL [Concomitant]
     Indication: DRUG USE FOR UNKNOWN INDICATION
  5. BISOPROLOL FUMARATE [Concomitant]
     Indication: DRUG USE FOR UNKNOWN INDICATION
  6. AMIODARONE HCL [Concomitant]
     Indication: DRUG USE FOR UNKNOWN INDICATION
  7. TAMOXIFEN CITRATE [Concomitant]
     Indication: DRUG USE FOR UNKNOWN INDICATION
     Dates: start: 20070515
  8. PRAVASTATIN [Concomitant]
     Indication: DRUG USE FOR UNKNOWN INDICATION
  9. LEVOTHYROXINE SODIUM [Concomitant]
     Indication: DRUG USE FOR UNKNOWN INDICATION

REACTIONS (1)
  - PULMONARY HYPERTENSION [None]
